FAERS Safety Report 8493021-3 (Version None)
Quarter: 2012Q3

REPORT INFORMATION
  Report Type: 
  Country: None (occurrence: None)
  Receive Date: 20120706
  Receipt Date: 20120629
  Transmission Date: 20120928
  Serious: Yes (Hospitalization)
  Sender: FDA-Public Use
  Company Number: DE-ABBOTT-12P-062-0936197-00

PATIENT
  Sex: Female

DRUGS (2)
  1. HUMIRA [Suspect]
     Indication: CROHN'S DISEASE
     Route: 058
     Dates: start: 20120328, end: 20120504
  2. CORTISONE ACETATE [Concomitant]
     Indication: CROHN'S DISEASE

REACTIONS (4)
  - DRUG INEFFECTIVE [None]
  - HOSPITALISATION [None]
  - WEIGHT DECREASED [None]
  - APHAGIA [None]
